FAERS Safety Report 14856367 (Version 2)
Quarter: 2020Q3

REPORT INFORMATION
  Report Type: Spontaneous
  Country: US (occurrence: US)
  Receive Date: 20180507
  Receipt Date: 20200813
  Transmission Date: 20201102
  Serious: Yes (Hospitalization, Other)
  Sender: FDA-Public Use
  Company Number: US-ROCHE-2038886

PATIENT
  Age: 79 Year
  Sex: Female
  Weight: 83.99 kg

DRUGS (21)
  1. IMODIUM A?D [Concomitant]
     Active Substance: LOPERAMIDE HYDROCHLORIDE
  2. PREDNISONE. [Concomitant]
     Active Substance: PREDNISONE
  3. ELIQUIS [Concomitant]
     Active Substance: APIXABAN
  4. DUONEB [Concomitant]
     Active Substance: ALBUTEROL SULFATE\IPRATROPIUM BROMIDE
  5. LEVOTHYROXINE SODIUM. [Concomitant]
     Active Substance: LEVOTHYROXINE SODIUM
  6. CRESTOR [Concomitant]
     Active Substance: ROSUVASTATIN CALCIUM
  7. LORAZEPAM. [Concomitant]
     Active Substance: LORAZEPAM
  8. PANTOPRAZOLE SODIUM. [Concomitant]
     Active Substance: PANTOPRAZOLE SODIUM
  9. ESBRIET [Suspect]
     Active Substance: PIRFENIDONE
     Indication: IDIOPATHIC PULMONARY FIBROSIS
     Route: 048
     Dates: start: 20171107
  10. BYSTOLIC [Concomitant]
     Active Substance: NEBIVOLOL HYDROCHLORIDE
  11. DILTIAZEM HCL [Concomitant]
     Active Substance: DILTIAZEM HYDROCHLORIDE
     Dosage: OD
  12. EFFEXOR XR [Concomitant]
     Active Substance: VENLAFAXINE HYDROCHLORIDE
  13. FUROSEMIDE. [Concomitant]
     Active Substance: FUROSEMIDE
  14. METAMUCIL [Concomitant]
     Active Substance: PLANTAGO SEED
  15. POTASSIUM CHLORIDE. [Concomitant]
     Active Substance: POTASSIUM CHLORIDE
  16. ESBRIET [Suspect]
     Active Substance: PIRFENIDONE
     Route: 048
     Dates: start: 20171110
  17. ESBRIET [Suspect]
     Active Substance: PIRFENIDONE
     Route: 048
     Dates: start: 201503
  18. VALSARTAN. [Concomitant]
     Active Substance: VALSARTAN
  19. ESBRIET [Suspect]
     Active Substance: PIRFENIDONE
     Indication: INTERSTITIAL LUNG DISEASE
     Route: 048
     Dates: start: 20171110
  20. LORATADINE. [Concomitant]
     Active Substance: LORATADINE
     Indication: HYPERSENSITIVITY
  21. TRIAMCINOLONE ACETONIDE. [Concomitant]
     Active Substance: TRIAMCINOLONE ACETONIDE

REACTIONS (10)
  - Visual impairment [Not Recovered/Not Resolved]
  - Cough [Unknown]
  - Decreased appetite [Unknown]
  - Eye disorder [Unknown]
  - Diarrhoea [Unknown]
  - Memory impairment [Unknown]
  - Vomiting [Unknown]
  - Diarrhoea [Recovered/Resolved with Sequelae]
  - Malaise [Unknown]
  - Fatigue [Recovered/Resolved]

NARRATIVE: CASE EVENT DATE: 2018
